FAERS Safety Report 16529293 (Version 2)
Quarter: 2019Q4

REPORT INFORMATION
  Report Type: Spontaneous
  Country: US (occurrence: US)
  Receive Date: 20190704
  Receipt Date: 20191002
  Transmission Date: 20200122
  Serious: No
  Sender: FDA-Public Use
  Company Number: US-GW PHARMA-201906USGW2013

PATIENT

DRUGS (13)
  1. DEPAKENE [Suspect]
     Active Substance: VALPROIC ACID
     Dosage: 39.9 MG/KG/DAY, 425 MILLIGRAM, BID
     Route: 065
     Dates: start: 2019
  2. EPIDIOLEX [Suspect]
     Active Substance: CANNABIDIOL
     Dosage: 9.4 MG/KG/DAY, 100 MILLIGRAM, BID
     Route: 048
     Dates: start: 2019
  3. ONFI [Concomitant]
     Active Substance: CLOBAZAM
     Indication: PRODUCT USED FOR UNKNOWN INDICATION
     Dosage: 1.4 MG/KG/DAY, 15 MILLIGRAM, BID
     Route: 065
  4. ONFI [Concomitant]
     Active Substance: CLOBAZAM
     Dosage: 1.2 MG/KG/DAY, 12.5 MILLIGRAM, BID
     Route: 065
     Dates: end: 2019
  5. ETHOSUXIMIDE. [Concomitant]
     Active Substance: ETHOSUXIMIDE
     Dosage: 18.8 MG/KG/DAY, 200 MILLIGRAM, BID
     Route: 065
  6. DEPAKENE [Suspect]
     Active Substance: VALPROIC ACID
     Dosage: 300 MILLIGRAM, BID
     Route: 065
     Dates: end: 2019
  7. ONFI [Concomitant]
     Active Substance: CLOBAZAM
     Dosage: 1.4 MG/KG/DAY, 15 MILLIGRAM, BID
     Route: 065
     Dates: start: 2019
  8. DEPAKENE [Suspect]
     Active Substance: VALPROIC ACID
     Indication: PRODUCT USED FOR UNKNOWN INDICATION
     Dosage: 40.3 MG/KG/DAY, 425 MILLIGRAM, BID
     Route: 065
  9. EPIDIOLEX [Suspect]
     Active Substance: CANNABIDIOL
     Indication: LENNOX-GASTAUT SYNDROME
     Dosage: 14.10 MG/KG, 150 MILLIGRAM, BID
     Route: 048
  10. EPIDIOLEX [Suspect]
     Active Substance: CANNABIDIOL
     Dosage: 9.4 MG/KG/DAY, 100 MILLIGRAM, BID
     Route: 048
     Dates: end: 2019
  11. GUANFACINE. [Concomitant]
     Active Substance: GUANFACINE
     Indication: PRODUCT USED FOR UNKNOWN INDICATION
     Dosage: UNK
     Route: 065
  12. DEPAKENE [Suspect]
     Active Substance: VALPROIC ACID
     Dosage: 39.9 MG/KG/DAY, 425 MILLIGRAM, BID
     Route: 065
  13. ETHOSUXIMIDE. [Concomitant]
     Active Substance: ETHOSUXIMIDE
     Indication: PRODUCT USED FOR UNKNOWN INDICATION
     Dosage: 19 MG/KG/DAY, 200 MILLIGRAM, BID
     Route: 065

REACTIONS (11)
  - Condition aggravated [Unknown]
  - Eating disorder [Recovering/Resolving]
  - Pyrexia [Unknown]
  - Drooling [Unknown]
  - Generalised tonic-clonic seizure [Unknown]
  - Dehydration [Unknown]
  - Platelet count abnormal [Recovering/Resolving]
  - Abdominal pain upper [Unknown]
  - Liver function test abnormal [Recovered/Resolved]
  - Hypersomnia [Unknown]
  - Seizure [Unknown]

NARRATIVE: CASE EVENT DATE: 20190428
